FAERS Safety Report 13030687 (Version 3)
Quarter: 2017Q1

REPORT INFORMATION
  Report Type: Spontaneous
  Country: US (occurrence: US)
  Receive Date: 20161215
  Receipt Date: 20170330
  Transmission Date: 20170428
  Serious: Yes (Death, Life-Threatening, Hospitalization, Other)
  Sender: FDA-Public Use
  Company Number: US-SA-2016SA223363

PATIENT
  Age: 60 Year
  Sex: Male

DRUGS (6)
  1. CYCLOPHOSPHAMIDE. [Suspect]
     Active Substance: CYCLOPHOSPHAMIDE
     Indication: BREAST CANCER
     Route: 065
  2. DOCETAXEL. [Suspect]
     Active Substance: DOCETAXEL
     Indication: BREAST CANCER
     Route: 065
  3. DOCETAXEL. [Suspect]
     Active Substance: DOCETAXEL
     Indication: BREAST CANCER
     Route: 065
  4. CYCLOPHOSPHAMIDE. [Suspect]
     Active Substance: CYCLOPHOSPHAMIDE
     Indication: BREAST CANCER
     Route: 065
  5. CYCLOPHOSPHAMIDE. [Suspect]
     Active Substance: CYCLOPHOSPHAMIDE
     Indication: BREAST CANCER
     Route: 065
  6. DOCETAXEL. [Suspect]
     Active Substance: DOCETAXEL
     Indication: BREAST CANCER
     Route: 065

REACTIONS (44)
  - Haemoglobin decreased [Fatal]
  - Fibrin D dimer increased [Fatal]
  - Pneumonia mycoplasmal [Fatal]
  - Odynophagia [Fatal]
  - Disseminated intravascular coagulation [Fatal]
  - Aspartate aminotransferase increased [Fatal]
  - Pulmonary congestion [Fatal]
  - Mucosal haemorrhage [Fatal]
  - Body temperature increased [Fatal]
  - Generalised oedema [Fatal]
  - Metabolic acidosis [Fatal]
  - Oxygen saturation decreased [Fatal]
  - Mouth haemorrhage [Fatal]
  - Haematocrit decreased [Fatal]
  - Purulent discharge [Fatal]
  - Prothrombin time prolonged [Fatal]
  - Blood alkaline phosphatase increased [Fatal]
  - Respiratory failure [Fatal]
  - Skin erosion [Fatal]
  - Nikolsky^s sign [Fatal]
  - Platelet count decreased [Fatal]
  - Multiple organ dysfunction syndrome [Fatal]
  - Alanine aminotransferase increased [Fatal]
  - Blood urea increased [Fatal]
  - Tachycardia [Fatal]
  - Rash [Fatal]
  - Fluid overload [Fatal]
  - Hypotension [Fatal]
  - Mucosal inflammation [Fatal]
  - Erythema [Fatal]
  - Eyelid erosion [Fatal]
  - Blood fibrinogen decreased [Fatal]
  - Pneumocystis jirovecii pneumonia [Fatal]
  - Stevens-Johnson syndrome [Fatal]
  - Mouth ulceration [Fatal]
  - Pharyngeal ulceration [Fatal]
  - Lip ulceration [Fatal]
  - Activated partial thromboplastin time prolonged [Fatal]
  - International normalised ratio increased [Fatal]
  - Pulmonary alveolar haemorrhage [Fatal]
  - Haemoptysis [Fatal]
  - Renal failure [Fatal]
  - Blood creatinine increased [Fatal]
  - Hypoxia [Fatal]
